FAERS Safety Report 5211430-2 (Version None)
Quarter: 2006Q4

REPORT INFORMATION
  Report Type: 
  Country: None (occurrence: None)
  Receive Date: 20061115
  Receipt Date: 20060802
  Transmission Date: 20070319
  Serious: Yes (Other)
  Sender: FDA-Public Use
  Company Number: 200616434US

PATIENT
  Age: 44 Year

DRUGS (3)
  1. APIDRA [Suspect]
     Indication: DIABETES MELLITUS NON-INSULIN-DEPENDENT
     Dosage: 30 UG QD
     Dates: start: 20050601
  2. PSEUDOEPHEDRINE HYDROCHLORIDE, FENOADIN (ALLEGRA-D) [Concomitant]
  3. ALENDRONATE SODIUM (FOSMAX) [Concomitant]

REACTIONS (1)
  - HYPERGLYCAEMIA [None]
